FAERS Safety Report 21936518 (Version 2)
Quarter: 2023Q2

REPORT INFORMATION
  Report Type: Spontaneous
  Country: FR (occurrence: FR)
  Receive Date: 20230201
  Receipt Date: 20230428
  Transmission Date: 20230721
  Serious: Yes (Hospitalization)
  Sender: FDA-Public Use
  Company Number: None

PATIENT
  Age: 83 Year
  Sex: Female
  Weight: 61 kg

DRUGS (6)
  1. LANSOPRAZOLE [Interacting]
     Active Substance: LANSOPRAZOLE
     Indication: Product used for unknown indication
     Dosage: 30 MILLIGRAM, QD (TAKEN AT 08:00 AM)
     Route: 065
     Dates: start: 20211126, end: 20211215
  2. ETOPOSIDE [Suspect]
     Active Substance: ETOPOSIDE
     Indication: Central nervous system lymphoma
     Dosage: 100 MG, 1 CYCICAL (FROM 05:39 PM TO 06:39 PM)
     Route: 042
     Dates: start: 20211214, end: 20211214
  3. METHOTREXATE [Interacting]
     Active Substance: METHOTREXATE
     Indication: Central nervous system lymphoma
     Dosage: 1560 MG, 1 CYCLICAL (FROM 05:05 PM TO 08:05 PM)
     Route: 042
     Dates: start: 20211213, end: 20211213
  4. TRUXIMA [Suspect]
     Active Substance: RITUXIMAB-ABBS
     Indication: Central nervous system lymphoma
     Dosage: 590 MG, 1 CYCLICAL (FROM 11:30 AM TO 04:30 PM)
     Route: 042
     Dates: start: 20211213, end: 20211213
  5. BACTRIM [Interacting]
     Active Substance: SULFAMETHOXAZOLE\TRIMETHOPRIM
     Indication: Antibiotic prophylaxis
     Dosage: 1 DOSAGE FORM, QOD (ON MONDAY, WEDNESDAY AND FRI
     Route: 065
     Dates: start: 20211106, end: 20211213
  6. VALACYCLOVIR [Interacting]
     Active Substance: VALACYCLOVIR HYDROCHLORIDE
     Indication: Antiviral prophylaxis
     Dosage: 2 DOSAGE FORM, QD (MORNING AND EVENING)
     Route: 065
     Dates: start: 20211204, end: 20211213

REACTIONS (2)
  - Acute kidney injury [Recovered/Resolved]
  - Drug interaction [Unknown]

NARRATIVE: CASE EVENT DATE: 20211214
